FAERS Safety Report 5442704-8 (Version None)
Quarter: 2007Q3

REPORT INFORMATION
  Report Type: 
  Country: None (occurrence: None)
  Receive Date: 20070904
  Receipt Date: 20070827
  Transmission Date: 20080115
  Serious: Yes (Other)
  Sender: FDA-Public Use
  Company Number: US-GILEAD-2007-0012706

PATIENT
  Sex: Male

DRUGS (12)
  1. VISTIDE [Suspect]
     Indication: PYODERMA
     Route: 061
  2. AZT [Concomitant]
     Indication: HIV INFECTION
     Route: 048
     Dates: start: 20040615
  3. LAMIVUDINE [Concomitant]
     Indication: HIV INFECTION
     Route: 048
     Dates: start: 20041116
  4. ABACAVIR [Concomitant]
     Indication: HIV INFECTION
     Route: 048
     Dates: start: 20030109
  5. EFAVIRENZ [Concomitant]
     Indication: HIV INFECTION
     Route: 048
     Dates: start: 20030109
  6. THALIDOMIDE [Concomitant]
     Indication: PYODERMA
     Route: 048
     Dates: start: 20070710
  7. VALTREX [Concomitant]
     Route: 048
  8. NEURONTIN [Concomitant]
     Indication: NEUROPATHY
     Route: 048
     Dates: start: 20030805
  9. NORVASC [Concomitant]
     Indication: HYPERTENSION
     Route: 048
     Dates: start: 20030109
  10. TOPROL-XL [Concomitant]
     Indication: HYPERTENSION
     Route: 048
     Dates: start: 20030805
  11. ALTACE [Concomitant]
     Route: 048
     Dates: start: 20040804
  12. VITAMIN D [Concomitant]
     Route: 048

REACTIONS (2)
  - RENAL TUBULAR NECROSIS [None]
  - UVEITIS [None]
